FAERS Safety Report 4417774-6 (Version None)
Quarter: 2004Q2

REPORT INFORMATION
  Report Type: 
  Country: None (occurrence: None)
  Receive Date: 20040621
  Receipt Date: 20040330
  Transmission Date: 20050107
  Serious: No
  Sender: FDA-Public Use
  Company Number: PHEH2004US03704

PATIENT
  Age: 37 Year
  Sex: Female

DRUGS (3)
  1. ZOMETA [Suspect]
     Indication: MULTIPLE MYELOMA
     Dosage: MONTHLY, INTRAVENOUS
     Route: 042
     Dates: start: 20030301
  2. ZYRTEC [Concomitant]
  3. PAXIL [Concomitant]

REACTIONS (2)
  - NIGHT SWEATS [None]
  - PRURITUS GENERALISED [None]
